FAERS Safety Report 8223818-6 (Version None)
Quarter: 2012Q1

REPORT INFORMATION
  Report Type: 
  Country: None (occurrence: None)
  Receive Date: 20120321
  Receipt Date: 20120321
  Transmission Date: 20120608
  Serious: Yes (Hospitalization, Other)
  Sender: FDA-Public Use
  Company Number: None

PATIENT
  Age: 40 Year
  Sex: Female
  Weight: 131.08 kg

DRUGS (2)
  1. CYMBALTA [Suspect]
  2. CYMBALTA [Suspect]
     Indication: MAJOR DEPRESSION
     Dosage: 120MG
     Route: 048
     Dates: start: 20070901, end: 20120301

REACTIONS (9)
  - DRUG INEFFECTIVE [None]
  - BLOOD THYROID STIMULATING HORMONE DECREASED [None]
  - INSOMNIA [None]
  - DRUG WITHDRAWAL SYNDROME [None]
  - INHIBITORY DRUG INTERACTION [None]
  - THYROID CANCER [None]
  - DEPRESSION [None]
  - HEADACHE [None]
  - CONDITION AGGRAVATED [None]
